FAERS Safety Report 15734337 (Version 2)
Quarter: 2020Q4

REPORT INFORMATION
  Report Type: Spontaneous
  Country: US (occurrence: US)
  Receive Date: 20181218
  Receipt Date: 20201201
  Transmission Date: 20210113
  Serious: Yes (Other)
  Sender: FDA-Public Use
  Company Number: US-PFIZER INC-2018517444

PATIENT
  Age: 70 Year
  Sex: Female

DRUGS (1)
  1. GENOTROPIN MQ [Suspect]
     Active Substance: SOMATROPIN
     Dosage: 0.6 MG, DAILY (7DAYS/WK)

REACTIONS (9)
  - Blood glucose increased [Unknown]
  - Blood corticotrophin decreased [Unknown]
  - Blood phosphorus decreased [Unknown]
  - Blood prolactin decreased [Unknown]
  - Blood creatinine increased [Unknown]
  - Blood testosterone free decreased [Unknown]
  - Glomerular filtration rate decreased [Unknown]
  - Neoplasm malignant [Unknown]
  - Blood alkaline phosphatase decreased [Unknown]

NARRATIVE: CASE EVENT DATE: 20181003
